FAERS Safety Report 4356767-4 (Version None)
Quarter: 2004Q2

REPORT INFORMATION
  Report Type: 
  Country: None (occurrence: None)
  Receive Date: 20040507
  Receipt Date: 20040415
  Transmission Date: 20050107
  Serious: Yes (Other)
  Sender: FDA-Public Use
  Company Number: USA040258078

PATIENT
  Age: 1 Day
  Sex: Male

DRUGS (1)
  1. STRATTERA [Suspect]
     Dates: start: 20030201, end: 20030301

REACTIONS (3)
  - INTRAVENTRICULAR HAEMORRHAGE NEONATAL [None]
  - MATERNAL DRUGS AFFECTING FOETUS [None]
  - PAIN [None]
